FAERS Safety Report 7680430-5 (Version None)
Quarter: 2011Q3

REPORT INFORMATION
  Report Type: 
  Country: None (occurrence: None)
  Receive Date: 20110812
  Receipt Date: 20110810
  Transmission Date: 20111222
  Serious: Yes (Death, Other)
  Sender: FDA-Public Use
  Company Number: US-PFIZER INC-2011099088

PATIENT
  Sex: Male

DRUGS (12)
  1. METOPROLOL [Concomitant]
     Indication: AORTIC DISSECTION
     Dosage: UNK
     Dates: start: 20070101, end: 20090101
  2. OXYCODONE [Concomitant]
     Indication: ANALGESIC THERAPY
     Dosage: UNK
     Dates: start: 20070101, end: 20090101
  3. DIAZEPAM [Concomitant]
     Indication: ANXIETY
     Dosage: UNK
     Dates: start: 20070101, end: 20090101
  4. LISINOPRIL [Concomitant]
     Indication: AORTIC DISSECTION
     Dosage: UNK
     Dates: start: 20070101, end: 20090101
  5. CHANTIX [Suspect]
     Indication: SMOKING CESSATION THERAPY
     Dosage: UNK
     Dates: start: 20080827, end: 20080930
  6. NIFEDIPINE [Concomitant]
     Indication: AORTIC DISSECTION
     Dosage: UNK
     Dates: start: 20070101, end: 20090101
  7. NIFEDIPINE [Concomitant]
     Indication: HYPERTENSION
  8. ACETYLSALICYLIC ACID [Concomitant]
     Indication: AORTIC DISSECTION
     Dosage: UNK
     Dates: start: 20070101, end: 20090101
  9. LISINOPRIL [Concomitant]
     Indication: HYPERTENSION
  10. ACETYLSALICYLIC ACID [Concomitant]
     Indication: HYPERTENSION
  11. METOPROLOL [Concomitant]
     Indication: HYPERTENSION
  12. ALPRAZOLAM [Concomitant]
     Indication: ANXIETY
     Dosage: UNK
     Dates: start: 20070101, end: 20100101

REACTIONS (5)
  - DEPRESSION [None]
  - DEATH [None]
  - SUICIDAL IDEATION [None]
  - NIGHTMARE [None]
  - ANXIETY [None]
